FAERS Safety Report 4983774-0 (Version None)
Quarter: 2006Q1

REPORT INFORMATION
  Report Type: 
  Country: None (occurrence: None)
  Receive Date: 20060301
  Receipt Date: 20051227
  Transmission Date: 20060701
  Serious: No
  Sender: FDA-Public Use
  Company Number: S05-USA-05366-01

PATIENT
  Age: 77 Year
  Sex: Female

DRUGS (7)
  1. NAMENDA [Suspect]
     Indication: AMNESIA
     Dosage: 5 MG BID PO
     Route: 048
     Dates: start: 20051227
  2. NAMENDA [Suspect]
     Indication: AMNESIA
     Dosage: 5 MG QD PO
     Route: 048
     Dates: start: 20051220, end: 20051226
  3. LODINE [Concomitant]
  4. VICODIN [Concomitant]
  5. POTASSIUM [Concomitant]
  6. BLOOD PRESSURE MEDICATION (NOS) [Concomitant]
  7. CHOLESTEROL MEDICATION (NOS) [Concomitant]

REACTIONS (1)
  - TREMOR [None]
